FAERS Safety Report 8893173 (Version 2)
Quarter: 2013Q1

REPORT INFORMATION
  Report Type: Spontaneous
  Country: US (occurrence: US)
  Receive Date: 20121108
  Receipt Date: 20130306
  Transmission Date: 20140127
  Serious: No
  Sender: FDA-Public Use
  Company Number: US-BAYER-2012-114266

PATIENT
  Age: 26 Year
  Sex: Female

DRUGS (4)
  1. MIRENA [Suspect]
     Indication: CONTRACEPTION
     Dosage: 20 MCG/24HR, CONT
     Route: 015
     Dates: start: 20120831, end: 20120831
  2. HYDROXYZINE HCL [Concomitant]
     Dosage: 50 MG, TT PO Q 6 HOURS PRN
     Route: 048
  3. COMMIT [Concomitant]
     Dosage: 4 MG, USE AS DIRECTED
  4. WELLBUTRIN XL [Concomitant]
     Dosage: 150 MG, T PO QDAY
     Route: 048

REACTIONS (4)
  - Device deployment issue [None]
  - Pelvic pain [None]
  - Pain [None]
  - Abdominal pain lower [None]
